FAERS Safety Report 10131293 (Version 1)
Quarter: 2014Q2

REPORT INFORMATION
  Report Type: Spontaneous
  Country: US (occurrence: US)
  Receive Date: 20140428
  Receipt Date: 20140428
  Transmission Date: 20141212
  Serious: No
  Sender: FDA-Public Use
  Company Number: US-GLAXOSMITHKLINE-A1040279A

PATIENT
  Age: 57 Year
  Sex: Female

DRUGS (3)
  1. ZOFRAN [Suspect]
     Indication: NAUSEA
  2. REGLAN [Suspect]
     Indication: NAUSEA
  3. OXYCODONE [Concomitant]

REACTIONS (1)
  - Drug ineffective [Unknown]
